FAERS Safety Report 24212506 (Version 2)
Quarter: 2024Q4

REPORT INFORMATION
  Report Type: Spontaneous
  Country: JP (occurrence: JP)
  Receive Date: 20240815
  Receipt Date: 20241203
  Transmission Date: 20250115
  Serious: Yes (Hospitalization, Other)
  Sender: ROCHE
  Company Number: JP-CHUGAI-2024009972

PATIENT
  Age: 75 Year
  Sex: Male
  Weight: 75 kg

DRUGS (2)
  1. TECENTRIQ [Suspect]
     Active Substance: ATEZOLIZUMAB
     Indication: Hepatocellular carcinoma
     Dosage: UNK, ONCE/3WEEKS
     Route: 042
     Dates: start: 20230607, end: 20240118
  2. AVASTIN [Suspect]
     Active Substance: BEVACIZUMAB
     Indication: Hepatocellular carcinoma
     Dosage: UNK, ONCE/3WEEKS
     Route: 042
     Dates: start: 20230607, end: 20230629

REACTIONS (4)
  - Cardiac failure [Recovering/Resolving]
  - Proteinuria [Not Recovered/Not Resolved]
  - Nephrotic syndrome [Recovering/Resolving]
  - Renal impairment [Unknown]

NARRATIVE: CASE EVENT DATE: 20240118
